FAERS Safety Report 21527588 (Version 2)
Quarter: 2023Q1

REPORT INFORMATION
  Report Type: Spontaneous
  Country: US (occurrence: US)
  Receive Date: 20221031
  Receipt Date: 20230227
  Transmission Date: 20230418
  Serious: Yes (Other)
  Sender: FDA-Public Use
  Company Number: US-PERRIGO-22US014103

PATIENT
  Age: 70 Year
  Sex: Female
  Weight: 58.957 kg

DRUGS (2)
  1. POLYETHYLENE GLYCOL 3350 [Suspect]
     Active Substance: POLYETHYLENE GLYCOL 3350
     Indication: Bowel preparation
     Dosage: 119 GRAMS, SINGLE
     Route: 048
     Dates: start: 20221019, end: 20221019
  2. DULCOLAX (BISACODYL) [Concomitant]
     Active Substance: BISACODYL
     Indication: Bowel preparation
     Dosage: UNKNOWN, UNKNOWN
     Route: 065
     Dates: start: 20221019, end: 20221019

REACTIONS (13)
  - Anaphylactic reaction [Recovered/Resolved]
  - Dyspnoea [Recovered/Resolved]
  - Vomiting [Recovered/Resolved]
  - Tremor [Recovered/Resolved]
  - Burning sensation [Recovered/Resolved]
  - Pruritus [Recovered/Resolved]
  - Erythema [Recovered/Resolved]
  - Rash [Recovered/Resolved]
  - Dysphonia [Recovering/Resolving]
  - Renal pain [Recovered/Resolved]
  - Back pain [Recovered/Resolved]
  - Overdose [Unknown]
  - Off label use [Unknown]

NARRATIVE: CASE EVENT DATE: 20221019
